FAERS Safety Report 14994575 (Version 4)
Quarter: 2018Q4

REPORT INFORMATION
  Report Type: Report from Study
  Country: None (occurrence: US)
  Receive Date: 20180611
  Receipt Date: 20181023
  Transmission Date: 20190204
  Serious: Yes (Other)
  Sender: FDA-Public Use
  Company Number: US-ABBVIE-18K-163-2378729-00

PATIENT
  Sex: Male

DRUGS (2)
  1. HUMIRA [Suspect]
     Active Substance: ADALIMUMAB
     Indication: UVEITIS
     Route: 058
  2. PREDNISONE. [Concomitant]
     Active Substance: PREDNISONE
     Indication: PRODUCT USED FOR UNKNOWN INDICATION
     Dates: end: 2017

REACTIONS (10)
  - Restless legs syndrome [Not Recovered/Not Resolved]
  - Arthritis [Unknown]
  - Glaucoma [Unknown]
  - Diabetes mellitus [Recovering/Resolving]
  - Uveitis [Unknown]
  - Weight decreased [Unknown]
  - Inappropriate schedule of product administration [Recovering/Resolving]
  - Optic nerve disorder [Not Recovered/Not Resolved]
  - Blindness [Not Recovered/Not Resolved]
  - Cataract [Unknown]
